FAERS Safety Report 4314536-5 (Version None)
Quarter: 2004Q1

REPORT INFORMATION
  Report Type: 
  Country: None (occurrence: None)
  Receive Date: 20040309
  Receipt Date: 20040223
  Transmission Date: 20041129
  Serious: Yes (Death, Hospitalization)
  Sender: FDA-Public Use
  Company Number: 04P-144-0248178-00

PATIENT
  Age: 36 Year
  Sex: Male

DRUGS (5)
  1. KALETRA [Suspect]
     Indication: HIV INFECTION
     Dosage: 3 CAPSULES, 2 IN 1 D, PER ORAL
     Route: 048
     Dates: start: 20021223, end: 20030201
  2. STAVUDINE [Concomitant]
  3. LAMIVUDINE [Concomitant]
  4. BACTRIM [Concomitant]
  5. CALCIUM FOLINATE [Concomitant]

REACTIONS (5)
  - ACUTE RESPIRATORY FAILURE [None]
  - CEREBRAL TOXOPLASMOSIS [None]
  - GRAND MAL CONVULSION [None]
  - NERVOUS SYSTEM DISORDER [None]
  - PNEUMOCYSTIS CARINII PNEUMONIA [None]
